FAERS Safety Report 9086126 (Version 3)
Quarter: 2013Q2

REPORT INFORMATION
  Report Type: Spontaneous
  Country: US (occurrence: US)
  Receive Date: 20130131
  Receipt Date: 20130405
  Transmission Date: 20140414
  Serious: Yes (Hospitalization, Congenital Anomaly, Other)
  Sender: FDA-Public Use
  Company Number: US-PFIZER INC-2013038752

PATIENT
  Sex: Male

DRUGS (5)
  1. ZOLOFT [Suspect]
     Indication: DEPRESSION
     Dosage: UNK
     Route: 064
     Dates: start: 2003
  2. PRENATAL VITAMINS [Concomitant]
     Dosage: UNK
     Route: 064
  3. NAPROXEN [Concomitant]
     Dosage: UNK
     Route: 064
  4. FIORICET [Concomitant]
     Dosage: UNK
     Route: 064
  5. PROMETHAZINE [Concomitant]
     Dosage: UNK
     Route: 064

REACTIONS (3)
  - Maternal exposure timing unspecified [Unknown]
  - Truncus arteriosus persistent [Unknown]
  - Ventricular septal defect [Unknown]
